FAERS Safety Report 21609242 (Version 1)
Quarter: 2022Q4

REPORT INFORMATION
  Report Type: Spontaneous
  Country: US (occurrence: None)
  Receive Date: 20221116
  Receipt Date: 20221116
  Transmission Date: 20230113
  Serious: Yes (Death)
  Sender: FDA-Public Use
  Company Number: None

PATIENT
  Age: 72 Year
  Sex: Male
  Weight: 83.6 kg

DRUGS (18)
  1. XALKORI [Suspect]
     Active Substance: CRIZOTINIB
     Indication: Respiratory tract neoplasm
     Dosage: FREQUENCY : TWICE A DAY;?
     Route: 048
  2. Acetaminohen [Concomitant]
  3. ATORVASTATIN [Concomitant]
     Active Substance: ATORVASTATIN
  4. BENZNIDAZOLE [Concomitant]
     Active Substance: BENZNIDAZOLE
  5. Bisacodyl EC hydroxyzine [Concomitant]
  6. ALBUTEROL\IPRATROPIUM [Concomitant]
     Active Substance: ALBUTEROL\IPRATROPIUM
  7. LIDOCAINE\PRILOCAINE [Concomitant]
     Active Substance: LIDOCAINE\PRILOCAINE
  8. MARINOL [Concomitant]
     Active Substance: DRONABINOL
  9. MELATONIN [Concomitant]
  10. MEMANTINE [Suspect]
     Active Substance: MEMANTINE
  11. METOPROLOL [Concomitant]
  12. MIRALAX [Concomitant]
     Active Substance: POLYETHYLENE GLYCOL 3350
  13. ONDANSETRON [Concomitant]
     Active Substance: ONDANSETRON
  14. Pamtoprazole [Concomitant]
  15. PAROXETINE [Concomitant]
     Active Substance: PAROXETINE
  16. POTASSIUM CHLORIDE [Concomitant]
     Active Substance: POTASSIUM CHLORIDE
  17. SODIUM CHLORIDE [Concomitant]
  18. XARELTO [Concomitant]
     Active Substance: RIVAROXABAN

REACTIONS (1)
  - Death [None]
